FAERS Safety Report 8936823 (Version 2)
Quarter: 2013Q1

REPORT INFORMATION
  Report Type: Spontaneous
  Country: US (occurrence: US)
  Receive Date: 20121130
  Receipt Date: 20130125
  Transmission Date: 20140127
  Serious: Yes (Hospitalization, Other)
  Sender: FDA-Public Use
  Company Number: PHEH2012US023489

PATIENT
  Sex: Female

DRUGS (1)
  1. GILENYA [Suspect]
     Dosage: 0.5 MG, QD
     Route: 048

REACTIONS (7)
  - Convulsion [Unknown]
  - Insomnia [Unknown]
  - Photophobia [Unknown]
  - Hallucination [Unknown]
  - Confusional state [Unknown]
  - Pollakiuria [Unknown]
  - Dizziness [Unknown]
